FAERS Safety Report 16576815 (Version 1)
Quarter: 2019Q3

REPORT INFORMATION
  Report Type: Spontaneous
  Country: FR (occurrence: FR)
  Receive Date: 20190716
  Receipt Date: 20190716
  Transmission Date: 20191004
  Serious: Yes (Disabling)
  Sender: FDA-Public Use
  Company Number: FR-GLAXOSMITHKLINE-FR2019126454

PATIENT
  Age: 11 Year
  Sex: Female

DRUGS (7)
  1. A 313 (RETINOL) [Suspect]
     Active Substance: RETINOL
     Indication: CYSTIC FIBROSIS
     Dosage: 1 DF, QD
     Route: 048
  2. PULMOZYME [Suspect]
     Active Substance: DORNASE ALFA
     Indication: CYSTIC FIBROSIS
     Dosage: UNK
     Route: 055
  3. SERETIDE [Suspect]
     Active Substance: FLUTICASONE PROPIONATE\SALMETEROL XINAFOATE
     Indication: CYSTIC FIBROSIS
     Dosage: 4 DF, QD
     Route: 048
  4. TOCOPHERYL ACETATE-D-ALPHA [Suspect]
     Active Substance: .ALPHA.-TOCOPHEROL ACETATE, D-
     Indication: CYSTIC FIBROSIS
     Dosage: 1 DF, QD
     Route: 048
  5. VITAMIN K1 [Suspect]
     Active Substance: PHYTONADIONE
     Indication: CYSTIC FIBROSIS
     Dosage: 1 DF, UNK
     Route: 048
  6. MOPRAL [Suspect]
     Active Substance: OMEPRAZOLE
     Indication: CYSTIC FIBROSIS
     Dosage: 20 MG, QD
     Route: 048
  7. CREON [Suspect]
     Active Substance: PANCRELIPASE AMYLASE\PANCRELIPASE LIPASE\PANCRELIPASE PROTEASE
     Indication: CYSTIC FIBROSIS
     Dosage: 8 DF, QD
     Route: 048

REACTIONS (1)
  - Osteochondritis [Recovered/Resolved with Sequelae]

NARRATIVE: CASE EVENT DATE: 20140621
